FAERS Safety Report 5899016-8 (Version None)
Quarter: 2008Q3

REPORT INFORMATION
  Report Type: 
  Country: None (occurrence: None)
  Receive Date: 20080925
  Receipt Date: 20080917
  Transmission Date: 20090109
  Serious: Yes (Death)
  Sender: FDA-Public Use
  Company Number: CH-ASTRAZENECA-2008PK00997

PATIENT
  Age: 43 Year
  Sex: Female

DRUGS (3)
  1. SEROQUEL [Suspect]
     Route: 048
     Dates: start: 20070101, end: 20071101
  2. CIPRALEX [Suspect]
     Route: 048
     Dates: start: 20060901, end: 20071101
  3. CHLORALDURAT [Suspect]
     Route: 048
     Dates: start: 20070501, end: 20071101

REACTIONS (4)
  - CARDIAC ARREST [None]
  - DRUG TOXICITY [None]
  - SHOCK [None]
  - VOMITING [None]
